FAERS Safety Report 17301922 (Version 1)
Quarter: 2020Q1

REPORT INFORMATION
  Report Type: Spontaneous
  Country: US (occurrence: US)
  Receive Date: 20200122
  Receipt Date: 20200122
  Transmission Date: 20200409
  Serious: No
  Sender: FDA-Public Use
  Company Number: US-ABBVIE-19K-163-2982096-00

PATIENT
  Sex: Female

DRUGS (1)
  1. ELAGOLIX [Suspect]
     Active Substance: ELAGOLIX
     Indication: ENDOMETRIOSIS
     Route: 048
     Dates: start: 2008, end: 2008

REACTIONS (3)
  - Osteoporosis [Not Recovered/Not Resolved]
  - Nerve block [Unknown]
  - Pelvic pain [Not Recovered/Not Resolved]

NARRATIVE: CASE EVENT DATE: 2009
